FAERS Safety Report 16272569 (Version 1)
Quarter: 2019Q2

REPORT INFORMATION
  Report Type: Spontaneous
  Country: US (occurrence: US)
  Receive Date: 20190503
  Receipt Date: 20190503
  Transmission Date: 20190711
  Serious: Yes (Life-Threatening, Hospitalization, Other)
  Sender: FDA-Public Use
  Company Number: US-B.I. PHARMACEUTICALS,INC./RIDGEFIELD-2019-12-001418

PATIENT
  Sex: Male
  Weight: 113.38 kg

DRUGS (3)
  1. VICTOZA [Suspect]
     Active Substance: LIRAGLUTIDE
     Indication: TYPE 2 DIABETES MELLITUS
     Dosage: 18 MICROGRAM, ONCE DAILY
     Route: 065
     Dates: start: 20130118, end: 20131228
  2. TRADJENTA [Suspect]
     Active Substance: LINAGLIPTIN
     Indication: TYPE 2 DIABETES MELLITUS
     Dosage: 5 MG, ONCE DAILY
     Route: 065
     Dates: start: 20130104, end: 20130203
  3. JANUVIA [Suspect]
     Active Substance: SITAGLIPTIN PHOSPHATE
     Indication: TYPE 2 DIABETES MELLITUS
     Dosage: 100 MG ONCE DAILY
     Route: 048
     Dates: start: 20110126, end: 20110225

REACTIONS (10)
  - Thyroid mass [Unknown]
  - Splenic lesion [Unknown]
  - Renal mass [Unknown]
  - Hepatic steatosis [Unknown]
  - Pericardial effusion [Unknown]
  - Ductal adenocarcinoma of pancreas [Unknown]
  - Surgery [Unknown]
  - Acinar cell carcinoma of pancreas [Unknown]
  - Prostatomegaly [Unknown]
  - Renal cyst [Unknown]

NARRATIVE: CASE EVENT DATE: 20140528
